FAERS Safety Report 8132700-4 (Version None)
Quarter: 2012Q1

REPORT INFORMATION
  Report Type: 
  Country: None (occurrence: None)
  Receive Date: 20120207
  Receipt Date: 20120127
  Transmission Date: 20120608
  Serious: Yes (Hospitalization)
  Sender: FDA-Public Use
  Company Number: SAN_00029_2012

PATIENT
  Age: 53 Year
  Sex: Male

DRUGS (1)
  1. METFORMIN HCL [Suspect]
     Indication: TYPE 2 DIABETES MELLITUS
     Dosage: (DF)

REACTIONS (26)
  - TACHYCARDIA [None]
  - RENAL FAILURE ACUTE [None]
  - HYPOPERFUSION [None]
  - TACHYPNOEA [None]
  - RESPIRATORY TRACT INFECTION [None]
  - PNEUMONIA [None]
  - METABOLIC ACIDOSIS [None]
  - HALLUCINATION [None]
  - LACTIC ACIDOSIS [None]
  - PROTEIN TOTAL INCREASED [None]
  - HYPERGLYCAEMIA [None]
  - HYPERKALAEMIA [None]
  - INFLAMMATION [None]
  - ACCIDENTAL POISONING [None]
  - MYDRIASIS [None]
  - PANCREATITIS ACUTE [None]
  - HAEMODIALYSIS [None]
  - DEPRESSED LEVEL OF CONSCIOUSNESS [None]
  - BLOOD PRESSURE INCREASED [None]
  - NERVOUS SYSTEM DISORDER [None]
  - DISORIENTATION [None]
  - DEHYDRATION [None]
  - SHOCK [None]
  - TOXICITY TO VARIOUS AGENTS [None]
  - OVERDOSE [None]
  - SUPERINFECTION [None]
